FAERS Safety Report 25238832 (Version 2)
Quarter: 2025Q2

REPORT INFORMATION
  Report Type: Spontaneous
  Country: PL (occurrence: PL)
  Receive Date: 20250425
  Receipt Date: 20250501
  Transmission Date: 20250717
  Serious: Yes (Other)
  Sender: AMGEN
  Company Number: PL-AMGEN-POLSP2025078983

PATIENT
  Age: 53 Year
  Sex: Male

DRUGS (1)
  1. REPATHA [Suspect]
     Active Substance: EVOLOCUMAB
     Indication: Product used for unknown indication
     Route: 065
     Dates: start: 202302

REACTIONS (4)
  - Pancreatic carcinoma metastatic [Unknown]
  - Glycosylated haemoglobin increased [Unknown]
  - Blood insulin increased [Unknown]
  - Blood thyroid stimulating hormone increased [Unknown]
